FAERS Safety Report 4615889-0 (Version None)
Quarter: 2005Q1

REPORT INFORMATION
  Report Type: 
  Country: None (occurrence: None)
  Receive Date: 20050318
  Receipt Date: 20050309
  Transmission Date: 20050727
  Serious: No
  Sender: FDA-Public Use
  Company Number: 2005AC00453

PATIENT
  Age: 66 Year
  Sex: Female
  Weight: 68 kg

DRUGS (3)
  1. ROSUVASTATIN [Suspect]
     Indication: LIPIDS INCREASED
     Dosage: 10 MG DAILY PO
     Route: 048
     Dates: end: 20050212
  2. ASICYLIC ACID [Concomitant]
  3. METOPROLOL TARTRATE [Concomitant]

REACTIONS (1)
  - MYOCARDIAL ISCHAEMIA [None]
